FAERS Safety Report 8244773-9 (Version None)
Quarter: 2012Q1

REPORT INFORMATION
  Report Type: 
  Country: None (occurrence: None)
  Receive Date: 20120329
  Receipt Date: 20110328
  Transmission Date: 20120608
  Serious: No
  Sender: FDA-Public Use
  Company Number: US-MYLANLABS-2011S1006707

PATIENT
  Sex: Female

DRUGS (4)
  1. FENTANYL-100 [Suspect]
     Indication: ARTHRITIS
     Dosage: Q 72 HOURS
     Route: 062
     Dates: start: 20101001
  2. ARICEPT [Concomitant]
  3. FENTANYL-100 [Suspect]
     Dosage: Q 72 HOURS
     Route: 062
     Dates: start: 20110301
  4. CARBIDOPA AND LEVODOPA [Concomitant]

REACTIONS (3)
  - WEIGHT DECREASED [None]
  - LETHARGY [None]
  - DECREASED APPETITE [None]
